FAERS Safety Report 15791053 (Version 1)
Quarter: 2019Q1

REPORT INFORMATION
  Report Type: Spontaneous
  Country: None (occurrence: IL)
  Receive Date: 20190104
  Receipt Date: 20190104
  Transmission Date: 20190417
  Serious: Yes (Other)
  Sender: FDA-Public Use
  Company Number: IL-SERVIER PHARMACEUTICALS LLC-2060877

PATIENT
  Age: 11 Year
  Sex: Male

DRUGS (1)
  1. ONCASPAR [Suspect]
     Active Substance: PEGASPARGASE
     Route: 041

REACTIONS (5)
  - Tachycardia [Unknown]
  - Swollen tongue [Unknown]
  - Oxygen saturation decreased [Unknown]
  - Wheezing [Unknown]
  - Dyspnoea [Unknown]
